FAERS Safety Report 8870924 (Version 3)
Quarter: 2013Q3

REPORT INFORMATION
  Report Type: Spontaneous
  Country: US (occurrence: None)
  Receive Date: 20121025
  Receipt Date: 20130916
  Transmission Date: 20140515
  Serious: Yes (Hospitalization, Other)
  Sender: FDA-Public Use
  Company Number: ACO_32561_2012

PATIENT
  Age: 47 Year
  Sex: Female

DRUGS (5)
  1. AMPYRA [Suspect]
     Indication: GAIT DISTURBANCE
     Dosage: 10 MG, BID
     Dates: start: 20110611
  2. VICODIN [Concomitant]
  3. GABAPENTIN (GABAPENTIN) [Concomitant]
  4. FLOMAX (TAMSULOSIN HYDROCHLORIDE) [Concomitant]
  5. NUVIGIL (ARMODAFINIL) [Concomitant]

REACTIONS (7)
  - Multiple sclerosis relapse [None]
  - Muscle spasms [None]
  - Urinary incontinence [None]
  - Transient ischaemic attack [None]
  - Dysarthria [None]
  - Coordination abnormal [None]
  - Urinary retention [None]
